FAERS Safety Report 4440484-6 (Version None)
Quarter: 2004Q3

REPORT INFORMATION
  Report Type: 
  Country: None (occurrence: None)
  Receive Date: 20040826
  Receipt Date: 20040421
  Transmission Date: 20050211
  Serious: Yes (Hospitalization, Disabling, Other)
  Sender: FDA-Public Use
  Company Number: 2004-06747

PATIENT
  Age: 16 Year
  Sex: Female
  Weight: 30.8 kg

DRUGS (9)
  1. VISTIDE [Suspect]
     Dosage: 5 MG/KG, EVERY 2 WEEKS, INTRAVENOUS
     Dates: start: 20031126, end: 20040226
  2. TENOFOVIR DISOPROXIL FUMARATE (TENOFOVIR DISOPROXIL FUMARATE) (300 MG, [Suspect]
     Indication: HIV INFECTION
     Dosage: 300 MG, 1 IN 1 D, ORAL
     Route: 048
     Dates: start: 20021201, end: 20030601
  3. LAMIVUDINE (LAMIVUDINE) (TABLET) [Concomitant]
  4. DELAVIRDINE (DELAVIRDINE) [Concomitant]
  5. INDINAVIR (INDINAVIR) [Concomitant]
  6. BACTRIM [Concomitant]
  7. AZITHROMYCIN [Concomitant]
  8. ETHAMBUTOL HCL [Concomitant]
  9. K PHOS NEUTRAL (K-PHOS NEUTRAL) [Concomitant]

REACTIONS (1)
  - RENAL TUBULAR DISORDER [None]
